FAERS Safety Report 4494931-4 (Version None)
Quarter: 2004Q4

REPORT INFORMATION
  Report Type: 
  Country: None (occurrence: None)
  Receive Date: 20041104
  Receipt Date: 20041104
  Transmission Date: 20050328
  Serious: Yes (Other)
  Sender: FDA-Public Use
  Company Number: None

PATIENT
  Sex: Male
  Weight: 79.3795 kg

DRUGS (11)
  1. DARBEPOETIN 60 MCG  ARANESP (R) BY AMGEN, INC [Suspect]
     Indication: ANAEMIA
     Dosage: 60 MCG Q OTHER WE SUBCUTANEOUS
     Route: 058
     Dates: start: 20040720, end: 20040805
  2. DARBEPOETIN 60 MCG  ARANESP (R) BY AMGEN, INC [Suspect]
     Indication: MULTIPLE MYELOMA
     Dosage: 60 MCG Q OTHER WE SUBCUTANEOUS
     Route: 058
     Dates: start: 20040720, end: 20040805
  3. ASPIRIN [Concomitant]
  4. DOCUSATE [Concomitant]
  5. FERROUS SULFATE TAB [Concomitant]
  6. LOVASTATIN [Concomitant]
  7. CYANOCOBALAIN [Concomitant]
  8. FLUNISOLIDE [Concomitant]
  9. PROPRANOLOL [Concomitant]
  10. VITAMIN E [Concomitant]
  11. PAMIDRONATE DISODIUM [Concomitant]

REACTIONS (1)
  - HEADACHE [None]
